FAERS Safety Report 6759457-3 (Version None)
Quarter: 2010Q2

REPORT INFORMATION
  Report Type: 
  Country: None (occurrence: None)
  Receive Date: 20100603
  Receipt Date: 20100520
  Transmission Date: 20101027
  Serious: Yes (Hospitalization, Other)
  Sender: FDA-Public Use
  Company Number: A-US2010-36335

PATIENT
  Age: 46 Year
  Sex: Male

DRUGS (14)
  1. TRACLEER [Suspect]
     Indication: PULMONARY HYPERTENSION
     Dosage: 62.5 MG., ORAL
     Route: 048
     Dates: start: 20100402, end: 20100410
  2. ALBUTEROL [Concomitant]
  3. ASPIRIN [Concomitant]
  4. EROCALCIFEROL (ERGOCALCIFEROL) [Concomitant]
  5. FLUTICASONE PROPIONATE [Concomitant]
  6. FOLIC ACID [Concomitant]
  7. FORMOTEROL (FORMOTEROL) [Concomitant]
  8. GUAIFENESIN [Concomitant]
  9. HYDROXYCHLOROQUINE SULFATE [Concomitant]
  10. ALDARA [Concomitant]
  11. METHOTREXATE [Concomitant]
  12. OXYGEN (OXYGEN) [Concomitant]
  13. PREDNISONE TAB [Concomitant]
  14. SPIRIVA [Concomitant]

REACTIONS (6)
  - CHRONIC OBSTRUCTIVE PULMONARY DISEASE [None]
  - CONDITION AGGRAVATED [None]
  - OFF LABEL USE [None]
  - PNEUMONIA [None]
  - TRACHEOBRONCHITIS [None]
  - VENTILATION PERFUSION MISMATCH [None]
